FAERS Safety Report 10045919 (Version 2)
Quarter: 2014Q1

REPORT INFORMATION
  Report Type: Spontaneous
  Country: US (occurrence: US)
  Receive Date: 20140329
  Receipt Date: 20140329
  Transmission Date: 20141002
  Serious: Yes (Other)
  Sender: FDA-Public Use
  Company Number: US-GE HEALTHCARE MEDICAL DIAGNOSTICS-OSCN-PR-0905S-0216

PATIENT
  Sex: Female

DRUGS (8)
  1. GADOLINIUM (UNSPECIFIED) [Suspect]
     Indication: PRODUCT USED FOR UNKNOWN INDICATION
     Route: 042
     Dates: start: 20021024, end: 20021024
  2. MAGNEVIST [Concomitant]
     Indication: PRODUCT USED FOR UNKNOWN INDICATION
     Route: 042
     Dates: start: 20021030, end: 20021030
  3. MAGNEVIST [Concomitant]
     Route: 042
     Dates: start: 20030610, end: 20030610
  4. MAGNEVIST [Concomitant]
     Route: 042
     Dates: start: 20051013, end: 20051013
  5. MAGNEVIST [Concomitant]
     Route: 042
     Dates: start: 20051027, end: 20051027
  6. MAGNEVIST [Concomitant]
     Route: 042
     Dates: start: 20060411, end: 20060411
  7. MAGNEVIST [Concomitant]
     Route: 042
     Dates: start: 20061009, end: 20061009
  8. EPOGEN [Concomitant]

REACTIONS (1)
  - Nephrogenic systemic fibrosis [Not Recovered/Not Resolved]
